FAERS Safety Report 7306229-7 (Version None)
Quarter: 2011Q1

REPORT INFORMATION
  Report Type: 
  Country: None (occurrence: None)
  Receive Date: 20110222
  Receipt Date: 20110209
  Transmission Date: 20110831
  Serious: Yes (Hospitalization)
  Sender: FDA-Public Use
  Company Number: PHHY2011GB10384

PATIENT
  Age: 82 Year
  Sex: Female

DRUGS (9)
  1. IPRATROPIUM BROMIDE [Concomitant]
     Dosage: 500 UG, QID
  2. ALBUTEROL [Concomitant]
     Dosage: 5 MG, QID
  3. PREDNISOLONE [Suspect]
     Indication: CHRONIC OBSTRUCTIVE PULMONARY DISEASE
     Dosage: UNK
     Route: 048
     Dates: start: 20110114
  4. CLOPIDOGREL [Concomitant]
     Dosage: 75 MG, QD
  5. DOXYCYCLINE [Concomitant]
     Dosage: UNK
  6. SERETIDE [Concomitant]
     Dosage: 500 IU, BID
  7. THEOPHYLLINE [Concomitant]
     Dosage: 200 MG, BID
  8. CIPROFLOXACIN [Suspect]
     Indication: CHRONIC OBSTRUCTIVE PULMONARY DISEASE
     Dosage: 500 MG, UNK
     Route: 048
     Dates: start: 20110114
  9. CARBOCISTEINE [Concomitant]
     Dosage: 750 MG, TID

REACTIONS (1)
  - TENDON RUPTURE [None]
